FAERS Safety Report 9142561 (Version 3)
Quarter: 2013Q2

REPORT INFORMATION
  Report Type: Spontaneous
  Country: JP (occurrence: JP)
  Receive Date: 20130306
  Receipt Date: 20130607
  Transmission Date: 20140414
  Serious: Yes (Death, Other)
  Sender: FDA-Public Use
  Company Number: JP-JNJFOC-20130215557

PATIENT
  Age: 54 Year
  Sex: Male
  Weight: 71 kg

DRUGS (18)
  1. SIMPONI [Suspect]
     Indication: RHEUMATOID ARTHRITIS
     Route: 058
     Dates: start: 20120614, end: 20120809
  2. SIMPONI [Suspect]
     Indication: RHEUMATOID ARTHRITIS
     Route: 058
     Dates: start: 20120904
  3. SIMPONI [Suspect]
     Indication: RHEUMATOID ARTHRITIS
     Route: 058
     Dates: start: 20121002
  4. SIMPONI [Suspect]
     Indication: RHEUMATOID ARTHRITIS
     Route: 058
     Dates: start: 201301
  5. METHOTREXATE [Suspect]
     Indication: RHEUMATOID ARTHRITIS
     Route: 048
     Dates: start: 20090825, end: 20101124
  6. METHOTREXATE [Suspect]
     Indication: RHEUMATOID ARTHRITIS
     Route: 048
     Dates: start: 20110315, end: 20120125
  7. METHOTREXATE [Suspect]
     Indication: RHEUMATOID ARTHRITIS
     Route: 048
     Dates: start: 20120201, end: 20120320
  8. METHOTREXATE [Suspect]
     Indication: RHEUMATOID ARTHRITIS
     Route: 048
     Dates: start: 20120327
  9. METHOTREXATE [Suspect]
     Indication: RHEUMATOID ARTHRITIS
     Route: 048
     Dates: start: 20101130, end: 20110309
  10. BUCILLAMINE [Concomitant]
     Indication: RHEUMATOID ARTHRITIS
     Route: 048
     Dates: start: 20090623, end: 20121030
  11. ARTZ [Concomitant]
     Indication: RHEUMATOID ARTHRITIS
     Route: 014
  12. NON-PYRINE COLD PREPARATION [Concomitant]
     Indication: PYREXIA
     Route: 048
     Dates: start: 20121106, end: 20121110
  13. MEIACT [Concomitant]
     Indication: PYREXIA
     Route: 048
     Dates: start: 20121106, end: 20121110
  14. ISCOTIN [Concomitant]
     Indication: ANTIBIOTIC PROPHYLAXIS
     Route: 048
     Dates: start: 20120530
  15. ESANBUTOL [Concomitant]
     Indication: TUBERCULOUS PLEURISY
     Route: 048
     Dates: start: 20121114, end: 20121212
  16. RIFAMPICIN [Concomitant]
     Indication: TUBERCULOUS PLEURISY
     Route: 048
     Dates: start: 20121114, end: 20121212
  17. PREDONINE [Concomitant]
     Indication: PLEURISY
     Dosage: 20MG(10-5-5) 3 TIMES PER DAY
     Route: 048
     Dates: start: 20121214, end: 20130124
  18. BAKTAR [Concomitant]
     Indication: PROPHYLAXIS
     Dosage: 1DF 2 TIMES PER DAY (2 DAYS PER WEEK)
     Route: 048
     Dates: start: 20121213

REACTIONS (2)
  - Myocardial infarction [Fatal]
  - Pleural effusion [Unknown]
